FAERS Safety Report 8179772 (Version 4)
Quarter: 2015Q3

REPORT INFORMATION
  Report Type: Spontaneous
  Country: JP (occurrence: JP)
  Receive Date: 20111013
  Receipt Date: 20150807
  Transmission Date: 20151125
  Serious: Yes (Death, Hospitalization)
  Sender: FDA-Public Use
  Company Number: JP-MERCK-1110USA00696

PATIENT
  Age: 73 Year
  Sex: Male

DRUGS (5)
  1. NORVASC [Interacting]
     Active Substance: AMLODIPINE BESYLATE
     Indication: HYPERTENSION
     Dosage: 2.5 MG, QD
     Route: 048
     Dates: start: 20031117, end: 20110911
  2. AMARYL [Interacting]
     Active Substance: GLIMEPIRIDE
     Indication: TYPE 2 DIABETES MELLITUS
     Dosage: 1 MG, QD
     Route: 048
     Dates: start: 20110221, end: 20110908
  3. PREMINENT TABLETS [Interacting]
     Active Substance: HYDROCHLOROTHIAZIDE\LOSARTAN POTASSIUM
     Indication: HYPERTENSION
     Dosage: UNK, QD
     Route: 048
     Dates: start: 20080428, end: 20110911
  4. GLACTIV [Suspect]
     Active Substance: SITAGLIPTIN
     Indication: TYPE 2 DIABETES MELLITUS
     Dosage: 50 MG, QD
     Route: 048
     Dates: start: 20110221, end: 20110908
  5. MOHRUS [Interacting]
     Active Substance: KETOPROFEN

REACTIONS (2)
  - Drug interaction [Fatal]
  - Pneumonia [Fatal]

NARRATIVE: CASE EVENT DATE: 20110908
